FAERS Safety Report 9322417 (Version 2)
Quarter: 2014Q1

REPORT INFORMATION
  Report Type: Spontaneous
  Country: GB (occurrence: GB)
  Receive Date: 20130531
  Receipt Date: 20140128
  Transmission Date: 20141002
  Serious: Yes (Other)
  Sender: FDA-Public Use
  Company Number: FR-GILEAD-2013-0076160

PATIENT
  Age: 72 Year
  Sex: Male

DRUGS (6)
  1. RANOLAZINE [Suspect]
     Indication: ANGINA PECTORIS
     Dosage: 375 MG, QD
     Route: 065
  2. RANOLAZINE [Suspect]
     Dosage: 500 MG, UNK
     Route: 065
  3. DILTIAZEM [Concomitant]
     Dosage: 300 MG, UNK
  4. SPIRONOLACTONE [Concomitant]
     Dosage: 25 MG, UNK
  5. PIROXAM [Concomitant]
  6. BISOPROLOL [Concomitant]

REACTIONS (2)
  - Hypotension [Recovering/Resolving]
  - Renal impairment [Recovering/Resolving]
